FAERS Safety Report 11720933 (Version 1)
Quarter: 2015Q4

REPORT INFORMATION
  Report Type: Spontaneous
  Country: US (occurrence: US)
  Receive Date: 20151110
  Receipt Date: 20151110
  Transmission Date: 20160304
  Serious: No
  Sender: FDA-Public Use
  Company Number: US-SA-2015SA145370

PATIENT
  Age: 65 Year
  Sex: Male

DRUGS (4)
  1. PRALUENT [Suspect]
     Active Substance: ALIROCUMAB
     Indication: BLOOD CHOLESTEROL INCREASED
     Dosage: FREQUENCY: Q2W
     Route: 065
     Dates: start: 20150904, end: 20150904
  2. ALIROCUMAB PREFILLED PEN [Concomitant]
     Indication: BLOOD CHOLESTEROL INCREASED
     Dosage: FREQUENCY: EVERY TWO WEEKS
     Dates: start: 20150904, end: 20150904
  3. ALIROCUMAB PREFILLED PEN [Concomitant]
     Indication: BLOOD CHOLESTEROL INCREASED
     Dosage: FREQUENCY: EVERY TWO WEEKS
     Dates: start: 20150918, end: 20150918
  4. PRALUENT [Suspect]
     Active Substance: ALIROCUMAB
     Indication: BLOOD CHOLESTEROL INCREASED
     Dosage: FREQUENCY: Q2W
     Route: 065
     Dates: start: 20150918, end: 20150918

REACTIONS (1)
  - Muscle spasms [Unknown]

NARRATIVE: CASE EVENT DATE: 20150919
